FAERS Safety Report 5742519-7 (Version None)
Quarter: 2008Q2

REPORT INFORMATION
  Report Type: 
  Country: None (occurrence: None)
  Receive Date: 20080519
  Receipt Date: 20080516
  Transmission Date: 20081010
  Serious: Yes (Other)
  Sender: FDA-Public Use
  Company Number: A0728383A

PATIENT
  Age: 36 Year
  Sex: Female

DRUGS (3)
  1. NICOTROL [Suspect]
     Indication: SMOKING CESSATION THERAPY
     Route: 062
  2. NICORETTE [Suspect]
     Indication: SMOKING CESSATION THERAPY
     Dosage: 4MG SEVEN TIMES PER DAY
     Route: 002
  3. CHANTIX [Concomitant]
     Indication: SMOKING CESSATION THERAPY

REACTIONS (3)
  - DRUG ADMINISTRATION ERROR [None]
  - MULTIPLE SCLEROSIS [None]
  - OVERDOSE [None]
